FAERS Safety Report 18378302 (Version 2)
Quarter: 2020Q4

REPORT INFORMATION
  Report Type: Report from Study
  Country: US (occurrence: US)
  Receive Date: 20201013
  Receipt Date: 20201112
  Transmission Date: 20210114
  Serious: Yes (Hospitalization)
  Sender: FDA-Public Use
  Company Number: US-JNJFOC-20201005086

PATIENT
  Age: 62 Year
  Sex: Male
  Weight: 69.46 kg

DRUGS (4)
  1. MACITENTAN [Suspect]
     Active Substance: MACITENTAN
     Route: 048
  2. SILDENAFIL CITRATE. [Concomitant]
     Active Substance: SILDENAFIL CITRATE
  3. MACITENTAN [Suspect]
     Active Substance: MACITENTAN
     Indication: PULMONARY ARTERIAL HYPERTENSION
     Route: 048
  4. EPOPROSTENOL SODIUM. [Suspect]
     Active Substance: EPOPROSTENOL SODIUM
     Indication: PULMONARY ARTERIAL HYPERTENSION
     Dosage: THE DOCTOR IS DECREASING HIS DOSE OF VELETRI
     Route: 042

REACTIONS (3)
  - Oedema [Unknown]
  - Dyspnoea [Unknown]
  - Oxygen saturation decreased [Unknown]
